FAERS Safety Report 6790531-1 (Version None)
Quarter: 2010Q2

REPORT INFORMATION
  Report Type: 
  Country: None (occurrence: None)
  Receive Date: 20100624
  Receipt Date: 20100616
  Transmission Date: 20101027
  Serious: Yes (Death)
  Sender: FDA-Public Use
  Company Number: BR-ROCHE-709877

PATIENT
  Age: 43 Year
  Sex: Female

DRUGS (1)
  1. TAMIFLU [Suspect]
     Indication: H1N1 INFLUENZA
     Route: 065
     Dates: start: 20100501

REACTIONS (7)
  - COUGH [None]
  - DEATH [None]
  - DYSPNOEA [None]
  - IMMUNODEFICIENCY [None]
  - OROPHARYNGEAL PAIN [None]
  - PYREXIA [None]
  - RHINITIS [None]
